FAERS Safety Report 13609586 (Version 1)
Quarter: 2017Q2

REPORT INFORMATION
  Report Type: Report from Study
  Country: US (occurrence: US)
  Receive Date: 20170602
  Receipt Date: 20170602
  Transmission Date: 20170830
  Serious: Yes (Other)
  Sender: FDA-Public Use
  Company Number: US-ACTELION-A-US2015-121990

PATIENT
  Age: 70 Year
  Sex: Female
  Weight: 78.5 kg

DRUGS (6)
  1. VENTAVIS [Suspect]
     Active Substance: ILOPROST
     Indication: PULMONARY ARTERIAL HYPERTENSION
     Route: 055
  2. ORENITRAM [Suspect]
     Active Substance: TREPROSTINIL
     Dosage: UNK
     Route: 048
  3. LETAIRIS [Suspect]
     Active Substance: AMBRISENTAN
     Indication: PRODUCT USED FOR UNKNOWN INDICATION
     Dosage: 5 MG, QD
     Route: 065
  4. XARELTO [Concomitant]
     Active Substance: RIVAROXABAN
  5. TRACLEER [Suspect]
     Active Substance: BOSENTAN
     Indication: PULMONARY ARTERIAL HYPERTENSION
     Dosage: UNK
     Route: 048
  6. ORENITRAM [Suspect]
     Active Substance: TREPROSTINIL
     Indication: PULMONARY HYPERTENSION
     Dosage: 0.25 MG, TID
     Route: 048
     Dates: start: 20150630

REACTIONS (19)
  - Diarrhoea [Recovered/Resolved]
  - Dizziness [Unknown]
  - Periodontitis [Unknown]
  - Weight decreased [Unknown]
  - Anal incontinence [Recovered/Resolved]
  - Thrombosis [Unknown]
  - Arthralgia [Unknown]
  - Gastrooesophageal reflux disease [Unknown]
  - Scleroderma [Unknown]
  - Dry mouth [Unknown]
  - Weight increased [Unknown]
  - Arthritis [Unknown]
  - Dyspepsia [Unknown]
  - Hernia [Unknown]
  - Gastric disorder [Unknown]
  - Joint injury [Unknown]
  - Frequent bowel movements [Unknown]
  - Constipation [Recovered/Resolved]
  - Arthropathy [Unknown]

NARRATIVE: CASE EVENT DATE: 2015
